FAERS Safety Report 19568813 (Version 1)
Quarter: 2021Q3

REPORT INFORMATION
  Report Type: Spontaneous
  Country: JP (occurrence: JP)
  Receive Date: 20210716
  Receipt Date: 20210716
  Transmission Date: 20211014
  Serious: Yes (Hospitalization)
  Sender: FDA-Public Use
  Company Number: JP-BAYER-2021-176245

PATIENT
  Age: 38 Year
  Sex: Female

DRUGS (1)
  1. IOPROMIDE 370 (100ML) [Suspect]
     Active Substance: IOPROMIDE
     Dosage: ONCE
     Route: 042
     Dates: start: 20210713, end: 20210713

REACTIONS (4)
  - Oral pruritus [Unknown]
  - Sneezing [Unknown]
  - Urticaria [Unknown]
  - Dysphonia [Unknown]

NARRATIVE: CASE EVENT DATE: 20210713
